FAERS Safety Report 19581920 (Version 3)
Quarter: 2021Q3

REPORT INFORMATION
  Report Type: Report from Study
  Country: US (occurrence: US)
  Receive Date: 20210719
  Receipt Date: 20210804
  Transmission Date: 20211014
  Serious: Yes (Other)
  Sender: FDA-Public Use
  Company Number: US-JAZZ-2021-US-012936

PATIENT
  Age: 43 Year
  Sex: Male

DRUGS (4)
  1. XYREM [Suspect]
     Active Substance: SODIUM OXYBATE
     Indication: NARCOLEPSY
     Dosage: 2.25 GRAM, BID
     Route: 048
     Dates: start: 200606, end: 200606
  2. XYREM [Suspect]
     Active Substance: SODIUM OXYBATE
     Indication: CATAPLEXY
     Dosage: DOSE ADJUSTMENT
     Route: 048
     Dates: start: 200606, end: 202007
  3. XYREM [Suspect]
     Active Substance: SODIUM OXYBATE
     Dosage: 3.75 GRAM, SECOND DOSE
     Route: 048
     Dates: start: 202007, end: 202007
  4. XYREM [Suspect]
     Active Substance: SODIUM OXYBATE
     Dosage: 4 GRAM, FIRST DOSE
     Route: 048
     Dates: start: 202007, end: 202007

REACTIONS (10)
  - Ear pain [Recovered/Resolved]
  - Primary headache associated with sexual activity [Recovered/Resolved]
  - Muscle strain [Recovered/Resolved]
  - Haemoptysis [Recovered/Resolved]
  - Organic erectile dysfunction [Recovered/Resolved]
  - Palatal oedema [Unknown]
  - Benign prostatic hyperplasia [Unknown]
  - Gastritis [Recovered/Resolved]
  - Ligament sprain [Recovered/Resolved]
  - Abdominal pain [Recovered/Resolved]

NARRATIVE: CASE EVENT DATE: 2013
